FAERS Safety Report 18819976 (Version 3)
Quarter: 2021Q1

REPORT INFORMATION
  Report Type: Report from Study
  Country: GB (occurrence: GB)
  Receive Date: 20210202
  Receipt Date: 20210326
  Transmission Date: 20210419
  Serious: Yes (Hospitalization, Other)
  Sender: FDA-Public Use
  Company Number: PHHY2019GB162874

PATIENT
  Sex: Male

DRUGS (2)
  1. COSENTYX [Suspect]
     Active Substance: SECUKINUMAB
     Dosage: 150 MG, QMO
     Route: 065
  2. COSENTYX [Suspect]
     Active Substance: SECUKINUMAB
     Indication: ANKYLOSING SPONDYLITIS
     Dosage: 150 MG, QW
     Route: 065

REACTIONS (15)
  - Renal disorder [Unknown]
  - Pneumonia [Unknown]
  - Heart valve incompetence [Unknown]
  - Dyspnoea [Unknown]
  - Diarrhoea [Unknown]
  - Gout [Unknown]
  - Illness [Unknown]
  - Abdominal discomfort [Unknown]
  - Arthralgia [Unknown]
  - Kidney infection [Unknown]
  - Malaise [Unknown]
  - Cardiac disorder [Unknown]
  - Chest discomfort [Unknown]
  - Product dose omission issue [Unknown]
  - Cough [Unknown]
